FAERS Safety Report 8122171-6 (Version None)
Quarter: 2012Q1

REPORT INFORMATION
  Report Type: 
  Country: None (occurrence: None)
  Receive Date: 20120208
  Receipt Date: 20120125
  Transmission Date: 20120608
  Serious: Yes (Other)
  Sender: FDA-Public Use
  Company Number: US-ROCHE-791415

PATIENT
  Sex: Male
  Weight: 97.61 kg

DRUGS (3)
  1. ACCUTANE [Suspect]
     Route: 065
     Dates: start: 20000501, end: 20010801
  2. ACLOVATE [Concomitant]
  3. ACCUTANE [Suspect]
     Indication: ACNE
     Route: 048

REACTIONS (8)
  - COLITIS ULCERATIVE [None]
  - HAEMORRHOIDS [None]
  - IRRITABLE BOWEL SYNDROME [None]
  - INFLAMMATORY BOWEL DISEASE [None]
  - LIP DRY [None]
  - DERMATITIS [None]
  - DEPRESSION [None]
  - SUICIDAL IDEATION [None]
